FAERS Safety Report 12197166 (Version 1)
Quarter: 2016Q1

REPORT INFORMATION
  Report Type: Spontaneous
  Country: US (occurrence: US)
  Receive Date: 20160321
  Receipt Date: 20160321
  Transmission Date: 20160526
  Serious: No
  Sender: FDA-Public Use
  Company Number: US-BIOGEN-2016BI00208122

PATIENT

DRUGS (1)
  1. TECFIDERA [Suspect]
     Active Substance: DIMETHYL FUMARATE
     Indication: MULTIPLE SCLEROSIS

REACTIONS (7)
  - Nausea [Unknown]
  - Drug intolerance [Unknown]
  - Underdose [Unknown]
  - Adverse reaction [Unknown]
  - Feeding disorder [Unknown]
  - Diarrhoea [Unknown]
  - Overweight [Unknown]
